FAERS Safety Report 26150121 (Version 1)
Quarter: 2025Q4

REPORT INFORMATION
  Report Type: Spontaneous
  Country: JP (occurrence: JP)
  Receive Date: 20251212
  Receipt Date: 20251212
  Transmission Date: 20260118
  Serious: Yes (Other)
  Sender: ORION PHARMA
  Company Number: JP-HEXAL-SDZ2023JP017466AA

PATIENT
  Age: 83 Year
  Sex: Male

DRUGS (6)
  1. ENTACAPONE [Suspect]
     Active Substance: ENTACAPONE
     Indication: Parkinson^s disease
     Route: 048
  2. ENTACAPONE [Suspect]
     Active Substance: ENTACAPONE
     Dosage: IN MORNING
  3. CARBIDOPA\LEVODOPA [Suspect]
     Active Substance: CARBIDOPA\LEVODOPA
     Indication: Product used for unknown indication
     Dosage: 100MG 4TABLETS, 50MG 4TABLETS/DAY/DIVIDED INTO FOUR
     Route: 048
  4. FUROSEMIDE [Concomitant]
     Active Substance: FUROSEMIDE
  5. TOPIROXOSTAT [Concomitant]
     Active Substance: TOPIROXOSTAT
  6. TIAPRIDE [Concomitant]
     Active Substance: TIAPRIDE

REACTIONS (4)
  - Hallucination [Unknown]
  - Overdose [Unknown]
  - Product dose omission issue [Unknown]
  - Tremor [Unknown]

NARRATIVE: CASE EVENT DATE: 20230823
